FAERS Safety Report 7799686-3 (Version None)
Quarter: 2011Q4

REPORT INFORMATION
  Report Type: 
  Country: None (occurrence: None)
  Receive Date: 20111006
  Receipt Date: 20110926
  Transmission Date: 20120403
  Serious: Yes (Hospitalization)
  Sender: FDA-Public Use
  Company Number: IT-ELI_LILLY_AND_COMPANY-IT201109007224

PATIENT
  Weight: 54 kg

DRUGS (7)
  1. TACHIDOL [Concomitant]
     Dosage: UNK
     Dates: start: 20110914
  2. NECITUMUMAB (11F8) (LY3012211) [Suspect]
     Indication: NON-SMALL CELL LUNG CANCER
     Dosage: 800 MG, OTHER
     Route: 042
     Dates: start: 20110916, end: 20110916
  3. GEMCITABINE HYDROCHLORIDE [Suspect]
     Indication: NON-SMALL CELL LUNG CANCER
     Dosage: 1980 MG, OTHER
     Route: 042
     Dates: start: 20110916, end: 20110916
  4. ISOSORBIDE DINITRATE [Concomitant]
     Dosage: UNK
     Dates: start: 19860101
  5. TERAZOSINA [Concomitant]
     Dosage: UNK
     Dates: start: 19990101
  6. CISPLATIN [Suspect]
     Indication: NON-SMALL CELL LUNG CANCER
     Dosage: 120 MG, OTHER
     Route: 042
     Dates: start: 20110916, end: 20110916
  7. PROSCAR [Concomitant]
     Dosage: UNK
     Dates: start: 19990101

REACTIONS (1)
  - GENERAL PHYSICAL HEALTH DETERIORATION [None]
